FAERS Safety Report 4319708-1 (Version None)
Quarter: 2004Q1

REPORT INFORMATION
  Report Type: 
  Country: None (occurrence: None)
  Receive Date: 20040316
  Receipt Date: 20040305
  Transmission Date: 20041129
  Serious: Yes (Death, Other)
  Sender: FDA-Public Use
  Company Number: US067234

PATIENT
  Age: 43 Year
  Sex: Female

DRUGS (10)
  1. ENBREL [Suspect]
     Indication: RHEUMATOID ARTHRITIS
     Dosage: 25 MG, 2 IN 1 WEEK, SC
     Route: 058
     Dates: start: 20030319, end: 20031202
  2. ROFECOXIB [Suspect]
     Dosage: 25 MG, 2 IN 1 DAY, PO
     Route: 048
     Dates: start: 20030515
  3. VICODIN [Suspect]
     Dosage: 5 MG, AS NECESSARY
     Dates: start: 20030807
  4. HYDROMORPHONE HYDROCHLORIDE [Suspect]
     Dates: start: 20040130
  5. FOLATE SODIUIM [Concomitant]
  6. PREDNISONE [Concomitant]
  7. LEFLUNOMIDE [Concomitant]
  8. LANSOPRAZOLE [Concomitant]
  9. FUROSEMIDE [Concomitant]
  10. POTASSIUM CHLORIDE [Concomitant]

REACTIONS (4)
  - CIRCULATORY COLLAPSE [None]
  - HEART RATE INCREASED [None]
  - PAIN [None]
  - SUDDEN DEATH [None]
